FAERS Safety Report 5087395-3 (Version None)
Quarter: 2006Q3

REPORT INFORMATION
  Report Type: 
  Country: None (occurrence: None)
  Receive Date: 20060727
  Receipt Date: 20060516
  Transmission Date: 20061208
  Serious: Yes (Other)
  Sender: FDA-Public Use
  Company Number: 2006065359

PATIENT
  Age: 62 Year
  Sex: Female
  Weight: 78.0187 kg

DRUGS (8)
  1. LYRICA [Suspect]
     Indication: DIABETIC NEUROPATHY
     Dosage: 75 MG (75 MG, 1 IN 1 D), ORAL
     Route: 048
     Dates: start: 20060301, end: 20060330
  2. GLUCOPHAGE [Concomitant]
  3. COATED ASPIRIN (ACETYLSALICYLIC ACID) [Concomitant]
  4. TOPROL-XL [Concomitant]
  5. ZOCOR [Concomitant]
  6. HYZAAR [Concomitant]
  7. ADVAIR DISKUS 100/50 [Concomitant]
  8. PREMPRO [Concomitant]

REACTIONS (1)
  - VISION BLURRED [None]
